FAERS Safety Report 10638518 (Version 2)
Quarter: 2014Q4

REPORT INFORMATION
  Report Type: Spontaneous
  Country: US (occurrence: None)
  Receive Date: 20141204
  Receipt Date: 20141219
  Transmission Date: 20150529
  Serious: Yes (Other)
  Sender: FDA-Public Use
  Company Number: 2014-US-015621

PATIENT
  Age: 59 Year
  Sex: Female
  Weight: 74.4 kg

DRUGS (25)
  1. QVAR (BECLOMETASONE DIPROPIONATE) AEROSOL [Concomitant]
  2. NITROSTAT (GLYCERYL TRINITRATE) [Concomitant]
  3. B12 (CYANOCOBALAMIN) [Concomitant]
  4. CLOPIDOGREL (CLOPIDOGREL BISULFATE) [Concomitant]
  5. METOPROLOL (METOPROLOL TARTRATE) [Concomitant]
     Active Substance: METOPROLOL TARTRATE
  6. COQ10 (UBIDECARENONE) [Concomitant]
     Active Substance: UBIDECARENONE
  7. ALPHALIPOIC ACID (THIOCTIC ACID) [Concomitant]
  8. VITAMIN C [Concomitant]
     Active Substance: ASCORBIC ACID
  9. PROBIOTIC (LACTOBACILLUS ACIDOPHILUS) [Concomitant]
  10. XYREM [Suspect]
     Active Substance: SODIUM OXYBATE
     Indication: HYPERSOMNIA
     Route: 048
     Dates: start: 20141031, end: 2014
  11. DILTIAZEM 24-HOUR (DILTIAZEM HYDROCHLORIDE) [Concomitant]
  12. FLUNISOLIDE (FLUNISOLIDE) [Concomitant]
  13. OMEGA-3 FISH OIL (FISH OIL) [Concomitant]
  14. VITAMIN B (VITAMIN B COMPLEX) [Concomitant]
  15. D.I.M. (DI-INDOLE-METHANE) (ALL OTHER THERAPEUTIC PRODUCTS) [Concomitant]
  16. CREON [Concomitant]
     Active Substance: PANCRELIPASE AMYLASE\PANCRELIPASE LIPASE\PANCRELIPASE PROTEASE
  17. CHOLESTYRAMINE POWDER (CHOLESTYRAMINE RESIN) [Concomitant]
  18. PROGESTERONE (PROGESTERONE) [Concomitant]
  19. VITAMIN E (TOCOPHERYL ACETATE) [Concomitant]
  20. HYDROXY-B12 (CYANOCOBALAMIN) [Concomitant]
  21. ASPIRIN (ACETYLSALICYLIC ACID) [Concomitant]
     Active Substance: ASPIRIN
  22. ARMOUR THYROID (THYROID) [Concomitant]
  23. TESTOSTERONE PROPIONATE (TESTOSTERONE PROPIONATE) [Concomitant]
  24. VITAMIN D2 [Concomitant]
     Active Substance: ERGOCALCIFEROL
  25. CALCIUM (CALCIUM) [Concomitant]
     Active Substance: CALCIUM

REACTIONS (7)
  - Blood pressure increased [None]
  - Off label use [None]
  - Pyrexia [None]
  - Visual impairment [None]
  - Arthritis [None]
  - Chills [None]
  - Osteoarthritis [None]

NARRATIVE: CASE EVENT DATE: 201411
